FAERS Safety Report 5000884-2 (Version None)
Quarter: 2006Q2

REPORT INFORMATION
  Report Type: 
  Country: None (occurrence: None)
  Receive Date: 20060512
  Receipt Date: 20050628
  Transmission Date: 20061013
  Serious: No
  Sender: FDA-Public Use
  Company Number: A0564724A

PATIENT
  Age: 80 Year
  Sex: Female

DRUGS (2)
  1. RELAFEN [Suspect]
     Indication: DRUG USE FOR UNKNOWN INDICATION
     Route: 065
  2. MOBIC [Suspect]
     Indication: DRUG USE FOR UNKNOWN INDICATION

REACTIONS (1)
  - DRUG INEFFECTIVE [None]
